FAERS Safety Report 7321735-7 (Version None)
Quarter: 2011Q1

REPORT INFORMATION
  Report Type: 
  Country: None (occurrence: None)
  Receive Date: 20110215
  Receipt Date: 20110131
  Transmission Date: 20110831
  Serious: Yes (Other)
  Sender: FDA-Public Use
  Company Number: AUR-APL-2011-00440

PATIENT
  Age: 38 Year
  Sex: Female

DRUGS (2)
  1. DOXYCYCLINE [Concomitant]
  2. CEFUROXIME [Suspect]
     Indication: LYME DISEASE
     Dosage: 1000MG-BID-   , 1 WEEK AGO-1/31/2011

REACTIONS (2)
  - CHOKING [None]
  - PRODUCT SOLUBILITY ABNORMAL [None]
